FAERS Safety Report 4653357-0 (Version None)
Quarter: 2005Q2

REPORT INFORMATION
  Report Type: 
  Country: None (occurrence: None)
  Receive Date: 20050503
  Receipt Date: 20050422
  Transmission Date: 20051028
  Serious: Yes (Life-Threatening)
  Sender: FDA-Public Use
  Company Number: 10949

PATIENT
  Age: 66 Year
  Sex: Male

DRUGS (9)
  1. LEUCOVORIN CALCIUM [Suspect]
     Indication: RECTAL CANCER
     Dosage: SEE IMAGE
     Route: 048
  2. TEGAFUR URACIL [Suspect]
     Indication: RECTAL CANCER
     Dosage: SEE IMAGE
     Route: 048
  3. ZALTOPROFEN [Concomitant]
  4. PREDNISOLONE [Concomitant]
  5. FAMOTIDINE [Concomitant]
  6. BACILLUS SUBTILIS/LACTOBACILLUS ACIDOPHILUS/STREPTOCOCCUS FAECALIS [Concomitant]
  7. MAGNESIUM OXIDE [Concomitant]
  8. CARBOCISTEINE [Concomitant]
  9. ZOPICLONE [Concomitant]

REACTIONS (3)
  - ALANINE AMINOTRANSFERASE INCREASED [None]
  - ASPARTATE AMINOTRANSFERASE INCREASED [None]
  - BLOOD POTASSIUM INCREASED [None]
